FAERS Safety Report 9573547 (Version 1)
Quarter: 2013Q4

REPORT INFORMATION
  Report Type: Spontaneous
  Country: US (occurrence: US)
  Receive Date: 20131001
  Receipt Date: 20131001
  Transmission Date: 20140711
  Serious: No
  Sender: FDA-Public Use
  Company Number: US-PFIZER INC-2013278563

PATIENT
  Age: 14 Year
  Sex: Male
  Weight: 53.1 kg

DRUGS (2)
  1. GENOTROPIN [Suspect]
     Indication: GROWTH HORMONE DEFICIENCY
     Dosage: 5.4 MG, 1X/DAY
     Route: 058
  2. ANASTROZOLE [Concomitant]
     Dosage: 1 MG, UNK

REACTIONS (1)
  - Injection site reaction [Unknown]
